FAERS Safety Report 5401485-4 (Version None)
Quarter: 2007Q3

REPORT INFORMATION
  Report Type: 
  Country: None (occurrence: None)
  Receive Date: 20070731
  Receipt Date: 20060817
  Transmission Date: 20080115
  Serious: No
  Sender: FDA-Public Use
  Company Number: A0617122A

PATIENT
  Age: 62 Year
  Sex: Male

DRUGS (3)
  1. DYAZIDE [Suspect]
     Indication: HYPERTENSION
     Dosage: 1CAP PER DAY
     Route: 048
     Dates: start: 20060815
  2. NADOL [Concomitant]
  3. PREVACID [Concomitant]

REACTIONS (2)
  - DRUG INEFFECTIVE [None]
  - OEDEMA PERIPHERAL [None]
